FAERS Safety Report 14818090 (Version 1)
Quarter: 2018Q2

REPORT INFORMATION
  Report Type: Spontaneous
  Country: DK (occurrence: DK)
  Receive Date: 20180427
  Receipt Date: 20180427
  Transmission Date: 20180711
  Serious: Yes (Other)
  Sender: FDA-Public Use
  Company Number: DK-TEVA-2018-DK-885167

PATIENT
  Age: 64 Year
  Sex: Female
  Weight: 75 kg

DRUGS (3)
  1. CLORIOCARD [Concomitant]
     Indication: THROMBOSIS PROPHYLAXIS
     Dosage: 75 MILLIGRAM DAILY; STRENGTH: 75 MG
     Route: 048
     Dates: start: 20160602
  2. ATORVASTATIN ^SANDOZ^ [Suspect]
     Active Substance: ATORVASTATIN
     Indication: THROMBOSIS PROPHYLAXIS
     Dosage: 80 MILLIGRAM DAILY; STRENGTH: 80 MG
     Route: 048
     Dates: start: 20160602, end: 20170518
  3. ATORVASTATIN TEVA [Suspect]
     Active Substance: ATORVASTATIN
     Indication: THROMBOSIS PROPHYLAXIS
     Dosage: 80 MILLIGRAM DAILY; STRENGTH  : 80 MG
     Route: 048
     Dates: start: 20160602, end: 20170518

REACTIONS (3)
  - Alopecia [Recovering/Resolving]
  - Diabetes mellitus [Not Recovered/Not Resolved]
  - Rash pruritic [Recovered/Resolved]

NARRATIVE: CASE EVENT DATE: 20161101
